FAERS Safety Report 4862640-5 (Version None)
Quarter: 2005Q4

REPORT INFORMATION
  Report Type: 
  Country: None (occurrence: None)
  Receive Date: 20051219
  Receipt Date: 20051219
  Transmission Date: 20060501
  Serious: Yes (Life-Threatening, Hospitalization)
  Sender: FDA-Public Use
  Company Number: None

PATIENT
  Age: 41 Year
  Sex: Female

DRUGS (1)
  1. NALBUPHINE [Suspect]
     Dosage: 5 MG   X 1 DOSE   IV BOLUS
     Route: 040
     Dates: start: 20051021, end: 20051021

REACTIONS (5)
  - DYSPNOEA [None]
  - ERYTHEMA [None]
  - SWELLING [None]
  - VENTRICULAR FIBRILLATION [None]
  - VENTRICULAR TACHYCARDIA [None]
